FAERS Safety Report 6038802-0 (Version None)
Quarter: 2009Q1

REPORT INFORMATION
  Report Type: 
  Country: None (occurrence: None)
  Receive Date: 20090115
  Receipt Date: 20080825
  Transmission Date: 20090719
  Serious: No
  Sender: FDA-Public Use
  Company Number: US-ABBOTT-08P-163-0472185-00

PATIENT
  Sex: Female

DRUGS (4)
  1. ADVICOR [Suspect]
     Indication: BLOOD CHOLESTEROL INCREASED
     Dosage: FORM: 500/20 MILLIGRAMS
     Route: 048
     Dates: start: 20070101
  2. ADVICOR [Suspect]
     Indication: LIPOPROTEIN (A) INCREASED
     Dosage: FORM: 750/20 MILLIGRAMS
     Route: 048
  3. ADVICOR [Suspect]
     Dosage: FORM: 1000/20 MILLIGRAMS
     Route: 048
     Dates: start: 20080401, end: 20080816
  4. ADVICOR [Suspect]
     Dosage: FORM: 1000/20 MILLIGRAMS
     Route: 048
     Dates: start: 20080819, end: 20080822

REACTIONS (7)
  - ABDOMINAL DISTENSION [None]
  - BLISTER [None]
  - EYE SWELLING [None]
  - HYPOAESTHESIA ORAL [None]
  - LARYNGITIS [None]
  - SWELLING FACE [None]
  - URTICARIA [None]
